FAERS Safety Report 4678431-4 (Version None)
Quarter: 2005Q1

REPORT INFORMATION
  Report Type: 
  Country: None (occurrence: None)
  Receive Date: 20041122
  Receipt Date: 20041122
  Transmission Date: 20050727
  Serious: Yes (Other)
  Sender: FDA-Public Use
  Company Number: None

PATIENT
  Sex: Male

DRUGS (2)
  1. DEPAKOTE (GENERIC) [Suspect]
     Indication: CONVULSION
     Dosage: 3050 MG THREE PO TID
     Route: 048
     Dates: end: 19970101
  2. TEGRETOL (GENERIC) [Suspect]
     Indication: CONVULSION
     Dosage: 200 MG ONE PO TID
     Route: 048
     Dates: end: 19970101

REACTIONS (1)
  - DRUG INEFFECTIVE [None]
